FAERS Safety Report 11516942 (Version 1)
Quarter: 2015Q3

REPORT INFORMATION
  Report Type: Spontaneous
  Country: US (occurrence: US)
  Receive Date: 20150917
  Receipt Date: 20150917
  Transmission Date: 20151125
  Serious: Yes (Death, Other)
  Sender: FDA-Public Use
  Company Number: US-TAKEDA-2014TUS010467

PATIENT

DRUGS (2)
  1. GLUCOTROL [Concomitant]
     Active Substance: GLIPIZIDE
     Dosage: 2.5 MG, UNK
     Dates: start: 2006
  2. ACTOS [Suspect]
     Active Substance: PIOGLITAZONE HYDROCHLORIDE
     Indication: TYPE 2 DIABETES MELLITUS
     Dosage: 30 MG, UNK
     Route: 048
     Dates: start: 200607, end: 2007

REACTIONS (3)
  - Metastatic carcinoma of the bladder [Fatal]
  - Metastases to spine [Unknown]
  - Metastases to bone [Unknown]

NARRATIVE: CASE EVENT DATE: 2006
